FAERS Safety Report 8802695 (Version 1)
Quarter: 2012Q4

REPORT INFORMATION
  Report Type: 
  Country: US (occurrence: US)
  Receive Date: 20120921
  Receipt Date: 20120921
  Transmission Date: 20130627
  Serious: Yes (Death, Other)
  Sender: FDA-Public Use
  Company Number: US-B.I. PHARMACEUTICALS,INC./RIDGEFIELD-2012-BP-23054BP

PATIENT
  Sex: Female

DRUGS (10)
  1. PRADAXA [Suspect]
     Dosage: 300 mg
     Dates: start: 20110825
  2. DOXEPIN [Concomitant]
     Dosage: 10 mg
  3. SEROQUEL [Concomitant]
     Dosage: 50 mg
  4. CARDIZEM CD [Concomitant]
     Dosage: 360 mg
  5. TYLENOL 8 HOUR [Concomitant]
     Dosage: 1300 mg
  6. FUROSEMIDE [Concomitant]
     Dosage: 80 mg
  7. LISINOPRIL [Concomitant]
     Dosage: 20 mg
  8. SIMVASTATIN [Concomitant]
     Dosage: 40 mg
  9. TRAZODONE [Concomitant]
     Dosage: 50 mg
  10. TEMAZEPAM [Concomitant]
     Dosage: 30 mg

REACTIONS (3)
  - Gastrointestinal haemorrhage [Fatal]
  - Multi-organ failure [Fatal]
  - Renal failure [Unknown]
